FAERS Safety Report 17818479 (Version 4)
Quarter: 2021Q4

REPORT INFORMATION
  Report Type: Report from Study
  Country: IL (occurrence: IL)
  Receive Date: 20200523
  Receipt Date: 20211013
  Transmission Date: 20220303
  Serious: Yes (Death, Hospitalization, Other)
  Sender: FDA-Public Use
  Company Number: IL-TAKEDA-2020TUS023293

PATIENT
  Sex: Male

DRUGS (5)
  1. BRIGATINIB [Suspect]
     Active Substance: BRIGATINIB
     Indication: Non-small cell lung cancer
     Dosage: 90 MILLIGRAM
     Route: 065
  2. BRIGATINIB [Suspect]
     Active Substance: BRIGATINIB
     Dosage: 180 MILLIGRAM/KILOGRAM
     Route: 048
     Dates: start: 202004
  3. BRIGATINIB [Suspect]
     Active Substance: BRIGATINIB
     Dosage: 360 MILLIGRAM
     Route: 065
  4. BRIGATINIB [Suspect]
     Active Substance: BRIGATINIB
     Dosage: 180 MILLIGRAM
     Route: 048
     Dates: start: 20200503
  5. CANNABIS SATIVA SUBSP. INDICA TOP [Concomitant]
     Active Substance: CANNABIS SATIVA SUBSP. INDICA TOP
     Dosage: UNK
     Route: 065

REACTIONS (10)
  - Non-small cell lung cancer [Fatal]
  - Pain [Fatal]
  - Bone pain [Not Recovered/Not Resolved]
  - Illness [Not Recovered/Not Resolved]
  - Fall [Not Recovered/Not Resolved]
  - Dysstasia [Not Recovered/Not Resolved]
  - Confusional state [Not Recovered/Not Resolved]
  - Overdose [Not Recovered/Not Resolved]
  - Cognitive disorder [Unknown]
  - Rash papular [Unknown]
